FAERS Safety Report 7020252-1 (Version None)
Quarter: 2010Q3

REPORT INFORMATION
  Report Type: 
  Country: None (occurrence: None)
  Receive Date: 20100927
  Receipt Date: 20100914
  Transmission Date: 20110219
  Serious: Yes (Hospitalization)
  Sender: FDA-Public Use
  Company Number: UTC-001440

PATIENT
  Age: 75 Year
  Sex: Male
  Weight: 72.7 kg

DRUGS (24)
  1. TYVASO [Suspect]
     Dosage: 72 MCG, (18 MCG. 4 IN 1 D) INHALATION
     Route: 055
     Dates: start: 20100908, end: 20100911
  2. LORAZEPAM [Concomitant]
  3. OXYGEN (OXYGEN) [Concomitant]
  4. SINGULAIR [Concomitant]
  5. PREDNISONE [Concomitant]
  6. HYDROXYUREA [Concomitant]
  7. VIAGRA (SILDENAFIL) (TABLETS) [Concomitant]
  8. RECLAST (ZOLEDRONIC ACID) (INJECTION FOR INFUSION) [Concomitant]
  9. AFRIN (OXYMETAZOLINE) (AEROSOL FOR INHALATION) [Concomitant]
  10. AZITHROMYCIN (AZITHROMYCIN) (TABLETS) [Concomitant]
  11. TAMSULOSIN (TAMSULOSIN) (CAPSULES) [Concomitant]
  12. ADVAIR DISKUS 100/50 [Concomitant]
  13. AVODART [Concomitant]
  14. RIFAMPIN (RIFAMPICIN) (CAPSULES) [Concomitant]
  15. A-Z MULTIVIAMIN (MULTIVITAMIN /00831701/) (TABLETS) [Concomitant]
  16. DILTIA (DILTIAZEM HYDROCHLORIDE) (CAPSULES) [Concomitant]
  17. ETHAMBUTOL (ETHAMBUTOL) (TABLETS) [Concomitant]
  18. ATROVENT (IPRATROPIUM BROMIDE) (INHALANT) [Concomitant]
  19. OMEPRAZOLE [Concomitant]
  20. CALCIUM CITRATE (CALCIUM CITRATE) [Concomitant]
  21. WARFARIN (WARFARIN) (TABLETS) [Concomitant]
  22. KLOR-CON (POTASSIUM CHLORIDE) (TABLETS) [Concomitant]
  23. XOPENEX [Concomitant]
  24. LETAIRIS (AMBRISENTAN) (TABLETS) [Concomitant]

REACTIONS (1)
  - PNEUMONIA [None]
